FAERS Safety Report 24714280 (Version 2)
Quarter: 2024Q4

REPORT INFORMATION
  Report Type: Report from Study
  Country: CN (occurrence: CN)
  Receive Date: 20241209
  Receipt Date: 20241220
  Transmission Date: 20250114
  Serious: Yes (Hospitalization)
  Sender: RIGEL PHARMACEUTICALS
  Company Number: CN-CSTONE PHARMACEUTICALS (SUZHOU) CO., LTD.-2024CN01397

PATIENT
  Age: 70 Year
  Sex: Male

DRUGS (2)
  1. PRALSETINIB [Suspect]
     Active Substance: PRALSETINIB
     Indication: Lung neoplasm malignant
     Dosage: 400 MILLIGRAM, QD
     Route: 048
     Dates: start: 202404
  2. FIRMONERTINIB MESYLATE [Concomitant]
     Active Substance: FIRMONERTINIB MESYLATE
     Indication: Lung neoplasm malignant
     Dosage: 2 CAPSULES PER DAY
     Route: 048

REACTIONS (3)
  - Hyperpyrexia [Recovering/Resolving]
  - Pneumonia [Recovering/Resolving]
  - Pyrexia [Recovering/Resolving]

NARRATIVE: CASE EVENT DATE: 20240401
